FAERS Safety Report 20935887 (Version 3)
Quarter: 2023Q1

REPORT INFORMATION
  Report Type: Report from Study
  Country: US (occurrence: US)
  Receive Date: 20220609
  Receipt Date: 20230308
  Transmission Date: 20230418
  Serious: Yes (Hospitalization, Other)
  Sender: FDA-Public Use
  Company Number: US-GILEAD-2022-0584516

PATIENT
  Age: 43 Year
  Sex: Female

DRUGS (2)
  1. AZTREONAM LYSINE [Suspect]
     Active Substance: AZTREONAM LYSINE
     Indication: Cystic fibrosis lung
     Dosage: 75 MG, TID EVERY OTHER MONTH
     Route: 055
  2. LINEZOLID [Concomitant]
     Active Substance: LINEZOLID

REACTIONS (2)
  - Cystic fibrosis [Unknown]
  - Influenza [Unknown]

NARRATIVE: CASE EVENT DATE: 20220514
